FAERS Safety Report 8557736-0 (Version None)
Quarter: 2012Q3

REPORT INFORMATION
  Report Type: 
  Country: None (occurrence: None)
  Receive Date: 20120801
  Receipt Date: 20120727
  Transmission Date: 20120928
  Serious: Yes (Hospitalization, Other)
  Sender: FDA-Public Use
  Company Number: US-AMGEN-USASP2012047255

PATIENT
  Age: 63 Year
  Sex: Male

DRUGS (4)
  1. ENBREL [Suspect]
     Indication: PSORIATIC ARTHROPATHY
     Dosage: 50 MG, QWK
     Dates: start: 20040309
  2. COUMADIN [Concomitant]
  3. METHOTREXATE [Concomitant]
  4. ENBREL [Suspect]
     Indication: PSORIASIS

REACTIONS (12)
  - LOSS OF CONSCIOUSNESS [None]
  - EPISTAXIS [None]
  - EAR HAEMORRHAGE [None]
  - TOOTH FRACTURE [None]
  - VASCULAR INJURY [None]
  - PSORIASIS [None]
  - SILENT MYOCARDIAL INFARCTION [None]
  - CARDIAC FAILURE [None]
  - DYSARTHRIA [None]
  - UMBILICAL HAEMORRHAGE [None]
  - MOBILITY DECREASED [None]
  - BLOOD TRIGLYCERIDES INCREASED [None]
